FAERS Safety Report 9406026 (Version 2)
Quarter: 2013Q4

REPORT INFORMATION
  Report Type: Spontaneous
  Country: US (occurrence: US)
  Receive Date: 20130717
  Receipt Date: 20131011
  Transmission Date: 20140711
  Serious: Yes (Hospitalization)
  Sender: FDA-Public Use
  Company Number: US-B.I. PHARMACEUTICALS,INC./RIDGEFIELD-2013-BI-20562BP

PATIENT
  Sex: Male
  Weight: 86.18 kg

DRUGS (12)
  1. PRADAXA [Suspect]
     Indication: ANTICOAGULANT THERAPY
     Dosage: 300 MG
     Dates: start: 20120306, end: 20130222
  2. PRADAXA [Suspect]
     Indication: ATRIAL FIBRILLATION
  3. METOPROLOL [Concomitant]
     Dosage: 200 MG
     Route: 048
     Dates: start: 1996
  4. LISINOPRIL HCTZ [Concomitant]
     Dates: start: 1996
  5. TYLENOL ARTHRITIS [Concomitant]
  6. AMLODIPINE [Concomitant]
     Dosage: 5 MG
     Dates: start: 1994
  7. SIMVASTATIN [Concomitant]
     Dosage: 10 MG
     Dates: start: 1996
  8. CLONAZEPAM [Concomitant]
     Dosage: 0.5 MG
  9. ALLOPURINOL [Concomitant]
     Dosage: 100 MG
  10. MOFETIL [Concomitant]
     Dosage: 2000 MG
     Dates: start: 2005
  11. FUROSEMIDE [Concomitant]
     Dosage: 20 MG
     Route: 048
     Dates: start: 1996
  12. HCTZ [Concomitant]
     Dosage: 25 MG
     Route: 048

REACTIONS (4)
  - Gastrointestinal haemorrhage [Unknown]
  - Anaemia [Unknown]
  - Coagulopathy [Unknown]
  - Renal failure acute [Unknown]
